FAERS Safety Report 13077965 (Version 19)
Quarter: 2020Q4

REPORT INFORMATION
  Report Type: Spontaneous
  Country: US (occurrence: US)
  Receive Date: 20170102
  Receipt Date: 20201224
  Transmission Date: 20210113
  Serious: Yes (Death, Hospitalization, Other)
  Sender: FDA-Public Use
  Company Number: US-JNJFOC-20161222834

PATIENT

DRUGS (4)
  1. ASPIRINE [Concomitant]
     Active Substance: ASPIRIN
     Indication: PRODUCT USED FOR UNKNOWN INDICATION
     Dosage: LESS THAN OR EQUAL TO 325 MG DAILY
     Route: 065
  2. IBUPROFEN. [Suspect]
     Active Substance: IBUPROFEN
     Route: 065
  3. ESOMEPRAZOLE. [Concomitant]
     Active Substance: ESOMEPRAZOLE MAGNESIUM
     Indication: GASTROINTESTINAL DISORDER THERAPY
     Dosage: 20 TO 40 MG
     Route: 065
  4. IBUPROFEN. [Suspect]
     Active Substance: IBUPROFEN
     Indication: ARTHRALGIA
     Route: 065

REACTIONS (28)
  - Haemorrhage [Fatal]
  - Intestinal haemorrhage [Unknown]
  - Gastric perforation [Unknown]
  - Gastrointestinal ulcer [Unknown]
  - Cardiovascular disorder [Fatal]
  - Iron deficiency anaemia [Unknown]
  - Blood creatinine increased [Unknown]
  - Obstruction gastric [Unknown]
  - Atrial fibrillation [Unknown]
  - Chest pain [Unknown]
  - Cerebrovascular accident [Unknown]
  - Coronary revascularisation [Unknown]
  - Transient ischaemic attack [Unknown]
  - Drug ineffective [Unknown]
  - Death [Fatal]
  - Cardiac failure [Unknown]
  - Gastric haemorrhage [Unknown]
  - Intestinal perforation [Unknown]
  - Hypertension [Unknown]
  - Prescribed overdose [Unknown]
  - Presyncope [Unknown]
  - Diabetes mellitus [Unknown]
  - Syncope [Unknown]
  - Renal disorder [Unknown]
  - Myocardial infarction [Unknown]
  - Angina unstable [Unknown]
  - Acute kidney injury [Unknown]
  - Gastrointestinal disorder [Unknown]
